FAERS Safety Report 5497019-9 (Version None)
Quarter: 2007Q4

REPORT INFORMATION
  Report Type: 
  Country: None (occurrence: None)
  Receive Date: 20071018
  Receipt Date: 20070626
  Transmission Date: 20080405
  Serious: Yes (Other)
  Sender: FDA-Public Use
  Company Number: 2007052762

PATIENT
  Age: 67 Year
  Sex: Female
  Weight: 54.54 kg

DRUGS (5)
  1. NEURONTIN [Suspect]
     Indication: NEUROPATHY PERIPHERAL
     Dosage: 1600 MG (400 MG, 4 IN 1 D)
     Dates: start: 20030101
  2. LIPITOR [Suspect]
     Indication: BLOOD CHOLESTEROL INCREASED
     Dates: start: 20040101
  3. SYNTHROID [Suspect]
     Indication: THYROID DISORDER
     Dates: start: 20040101
  4. LAMICTAL [Suspect]
     Dates: start: 20060101
  5. HALDOL [Concomitant]

REACTIONS (5)
  - AMNESIA [None]
  - BLOOD CHOLESTEROL INCREASED [None]
  - CONFUSIONAL STATE [None]
  - COORDINATION ABNORMAL [None]
  - THYROID DISORDER [None]
